FAERS Safety Report 6499617-2 (Version None)
Quarter: 2009Q4

REPORT INFORMATION
  Report Type: 
  Country: None (occurrence: None)
  Receive Date: 20091209
  Receipt Date: 20080729
  Transmission Date: 20100525
  Serious: No
  Sender: FDA-Public Use
  Company Number: M2008-014B

PATIENT
  Age: 30 Year
  Sex: Female

DRUGS (1)
  1. PMG 3 GRASS MIX M2008-014B-1 STD NGLY 1-10K V/V HOLLIST-STIER [Suspect]
     Indication: HYPERSENSITIVITY
     Dosage: 0.025 ML BEGINNING IT INJECTION 1ST INJECTION

REACTIONS (3)
  - INJECTION SITE PRURITUS [None]
  - INJECTION SITE RASH [None]
  - INJECTION SITE REACTION [None]
